FAERS Safety Report 10504573 (Version 1)
Quarter: 2014Q4

REPORT INFORMATION
  Report Type: Spontaneous
  Country: US (occurrence: US)
  Receive Date: 20141008
  Receipt Date: 20141008
  Transmission Date: 20150528
  Serious: Yes (Other)
  Sender: FDA-Public Use
  Company Number: US-ACTAVIS-2014-21354

PATIENT
  Age: 27 Year
  Sex: Female
  Weight: 59 kg

DRUGS (1)
  1. DEXTROAMPHETAMINE-AMPHETAMINE (AELLC) [Suspect]
     Active Substance: DEXTROAMPHETAMINE
     Indication: ATTENTION DEFICIT/HYPERACTIVITY DISORDER
     Dosage: 30 MG, BID
     Route: 048
     Dates: start: 201407, end: 201409

REACTIONS (9)
  - Depression [Recovered/Resolved]
  - Self-injurious ideation [Recovered/Resolved]
  - Panic attack [Recovered/Resolved]
  - Fatigue [Recovered/Resolved]
  - Agitation [Recovered/Resolved]
  - Suicidal ideation [Recovered/Resolved]
  - Restlessness [Recovered/Resolved]
  - Anxiety [Recovered/Resolved]
  - Disturbance in attention [Recovered/Resolved]

NARRATIVE: CASE EVENT DATE: 2014
